FAERS Safety Report 10830514 (Version 1)
Quarter: 2015Q1

REPORT INFORMATION
  Report Type: Spontaneous
  Country: LU (occurrence: LU)
  Receive Date: 20150219
  Receipt Date: 20150219
  Transmission Date: 20150721
  Serious: Yes (Hospitalization)
  Sender: FDA-Public Use
  Company Number: LU-PFIZER INC-2015060002

PATIENT
  Age: 34 Year
  Sex: Female

DRUGS (3)
  1. PARACETAMOL [Concomitant]
     Active Substance: ACETAMINOPHEN
     Indication: INFLUENZA LIKE ILLNESS
     Dosage: UNK
     Route: 048
     Dates: start: 2014
  2. ZINNAT [Suspect]
     Active Substance: CEFUROXIME AXETIL
     Indication: INFLUENZA LIKE ILLNESS
     Dosage: 1 DF, UNK
     Route: 048
     Dates: start: 2014
  3. DIFLUCAN [Suspect]
     Active Substance: FLUCONAZOLE
     Indication: INFLUENZA LIKE ILLNESS
     Dosage: 1 DF, UNK
     Route: 048
     Dates: start: 2014

REACTIONS (3)
  - Dyspnoea [Recovered/Resolved]
  - Urticaria [Recovered/Resolved]
  - Dysphagia [Recovered/Resolved]

NARRATIVE: CASE EVENT DATE: 2014
